FAERS Safety Report 7597232-0 (Version None)
Quarter: 2011Q3

REPORT INFORMATION
  Report Type: 
  Country: None (occurrence: None)
  Receive Date: 20110708
  Receipt Date: 20101109
  Transmission Date: 20111222
  Serious: No
  Sender: FDA-Public Use
  Company Number: US-GLAXOSMITHKLINE-A0891398A

PATIENT
  Sex: Female

DRUGS (2)
  1. FLOVENT [Suspect]
     Indication: ASTHMA
     Route: 065
  2. SEREVENT [Suspect]
     Indication: ASTHMA
     Route: 065

REACTIONS (3)
  - INSOMNIA [None]
  - PAIN [None]
  - MUSCLE SPASMS [None]
